FAERS Safety Report 10556289 (Version 4)
Quarter: 2015Q3

REPORT INFORMATION
  Report Type: Report from Study
  Country: BR (occurrence: BR)
  Receive Date: 20141031
  Receipt Date: 20150720
  Transmission Date: 20151125
  Serious: Yes (Hospitalization, Other)
  Sender: FDA-Public Use
  Company Number: BR-BIOGENIDEC-2013BI035760

PATIENT
  Age: 40 Year
  Sex: Male

DRUGS (1)
  1. TYSABRI [Suspect]
     Active Substance: NATALIZUMAB
     Indication: MULTIPLE SCLEROSIS
     Route: 042
     Dates: start: 20121005, end: 201401

REACTIONS (19)
  - Alopecia [Unknown]
  - Pain [Recovered/Resolved]
  - Rash [Not Recovered/Not Resolved]
  - Tracheostomy [Not Recovered/Not Resolved]
  - Diarrhoea [Unknown]
  - Pyrexia [Not Recovered/Not Resolved]
  - Nosocomial infection [Not Recovered/Not Resolved]
  - Aphasia [Not Recovered/Not Resolved]
  - Gastric infection [Recovered/Resolved]
  - Infection [Unknown]
  - Tracheitis [Recovered/Resolved]
  - Blister [Unknown]
  - Hyperhidrosis [Not Recovered/Not Resolved]
  - Gastrointestinal tube insertion [Not Recovered/Not Resolved]
  - Vomiting [Not Recovered/Not Resolved]
  - Malaise [Unknown]
  - Quadriplegia [Unknown]
  - Muscle atrophy [Unknown]
  - Pneumonia [Unknown]

NARRATIVE: CASE EVENT DATE: 20130222
